FAERS Safety Report 8375512-9 (Version None)
Quarter: 2012Q1

REPORT INFORMATION
  Report Type: 
  Country: None (occurrence: None)
  Receive Date: 20120323
  Receipt Date: 20110228
  Transmission Date: 20120608
  Serious: Yes (Hospitalization)
  Sender: FDA-Public Use
  Company Number: 163-21880-11030108

PATIENT
  Age: 73 Year
  Sex: Female

DRUGS (1)
  1. REVLIMID [Suspect]
     Indication: MULTIPLE MYELOMA
     Dosage: 10 MG, 1 IN 1 D, PO
     Route: 048
     Dates: start: 20110201, end: 20110201

REACTIONS (15)
  - RENAL DISORDER [None]
  - PRURITUS [None]
  - ASTHENIA [None]
  - DECREASED APPETITE [None]
  - BACK PAIN [None]
  - INSOMNIA [None]
  - EPISTAXIS [None]
  - DRY SKIN [None]
  - DIZZINESS [None]
  - OROPHARYNGEAL PAIN [None]
  - MUSCLE SPASMS [None]
  - PYREXIA [None]
  - DYSPNOEA [None]
  - FATIGUE [None]
  - HEADACHE [None]
